FAERS Safety Report 9016902 (Version 1)
Quarter: 2013Q1

REPORT INFORMATION
  Report Type: Spontaneous
  Country: DE (occurrence: DE)
  Receive Date: 20130117
  Receipt Date: 20130117
  Transmission Date: 20140127
  Serious: Yes (Other)
  Sender: FDA-Public Use
  Company Number: DE-SANOFI-AVENTIS-2013SA003103

PATIENT
  Sex: Male

DRUGS (3)
  1. PLAVIX [Suspect]
     Indication: STENT PLACEMENT
     Route: 065
  2. BRILIQUE [Concomitant]
  3. EFIENT [Concomitant]

REACTIONS (3)
  - Blood pressure systolic increased [Unknown]
  - Fatigue [Unknown]
  - Insomnia [Unknown]
